FAERS Safety Report 6543340-2 (Version None)
Quarter: 2010Q1

REPORT INFORMATION
  Report Type: 
  Country: None (occurrence: None)
  Receive Date: 20100106
  Receipt Date: 20091002
  Transmission Date: 20100710
  Serious: No
  Sender: FDA-Public Use
  Company Number: 2009-00650

PATIENT
  Age: 68 Year
  Sex: Female
  Weight: 59.8748 kg

DRUGS (3)
  1. COLD REMEDY RAPIDMELTS, CHERRY FLAVOR [Suspect]
     Dosage: 4 OR 5 DOSES - LAST FALL
  2. GLIMEPIRIDE [Concomitant]
  3. METFORMIN [Concomitant]

REACTIONS (1)
  - AGEUSIA [None]
